FAERS Safety Report 25373620 (Version 1)
Quarter: 2025Q2

REPORT INFORMATION
  Report Type: Spontaneous
  Country: US (occurrence: US)
  Receive Date: 20250529
  Receipt Date: 20250529
  Transmission Date: 20250716
  Serious: Yes (Hospitalization)
  Sender: ELI LILLY AND COMPANY
  Company Number: US-ELI_LILLY_AND_COMPANY-US202505022804

PATIENT
  Age: 70 Year
  Sex: Female

DRUGS (1)
  1. TADALAFIL [Suspect]
     Active Substance: TADALAFIL
     Indication: Pulmonary arterial hypertension
     Route: 065

REACTIONS (4)
  - Pulmonary embolism [Recovered/Resolved]
  - Ophthalmic migraine [Recovered/Resolved]
  - Drug intolerance [Recovered/Resolved]
  - Migraine [Recovered/Resolved]
